FAERS Safety Report 23984657 (Version 1)
Quarter: 2024Q2

REPORT INFORMATION
  Report Type: Spontaneous
  Country: ES (occurrence: ES)
  Receive Date: 20240618
  Receipt Date: 20240618
  Transmission Date: 20240716
  Serious: Yes (Hospitalization)
  Sender: FDA-Public Use
  Company Number: None

PATIENT
  Age: 22 Year
  Sex: Male

DRUGS (3)
  1. CARBAMAZEPINE [Suspect]
     Active Substance: CARBAMAZEPINE
     Indication: Withdrawal syndrome
     Dosage: 200 MG, QD
     Route: 048
     Dates: start: 202401, end: 20240307
  2. VALPROIC ACID [Suspect]
     Active Substance: VALPROIC ACID
     Indication: Withdrawal syndrome
     Dosage: 250 MG, QD
     Route: 048
     Dates: start: 202401, end: 20240307
  3. LEVOMEPROMAZINE MALEATE [Concomitant]
     Active Substance: LEVOMEPROMAZINE MALEATE
     Indication: Withdrawal syndrome
     Dosage: 25 MG, QD
     Route: 048
     Dates: start: 202401, end: 20240307

REACTIONS (1)
  - Drug reaction with eosinophilia and systemic symptoms [Recovered/Resolved]

NARRATIVE: CASE EVENT DATE: 20240228
